FAERS Safety Report 6103648-1 (Version None)
Quarter: 2009Q1

REPORT INFORMATION
  Report Type: 
  Country: None (occurrence: None)
  Receive Date: 20090302
  Receipt Date: 20090212
  Transmission Date: 20090719
  Serious: Yes (Death)
  Sender: FDA-Public Use
  Company Number: 1000004921

PATIENT
  Age: 56 Year
  Sex: Female

DRUGS (6)
  1. CARBAMAZEPINE [Suspect]
  2. QUETIAPINE FUMARATE [Suspect]
  3. DULOXETINE [Suspect]
  4. LAMOTRIGINE [Suspect]
  5. LORAZEPAM [Concomitant]
  6. IBUPROFEN [Concomitant]

REACTIONS (4)
  - CARDIAC ARREST [None]
  - COMPLETED SUICIDE [None]
  - MULTIPLE DRUG OVERDOSE INTENTIONAL [None]
  - RESPIRATORY ARREST [None]
